FAERS Safety Report 6661379-3 (Version None)
Quarter: 2010Q1

REPORT INFORMATION
  Report Type: 
  Country: None (occurrence: None)
  Receive Date: 20100331
  Receipt Date: 20100325
  Transmission Date: 20100710
  Serious: Yes (Hospitalization, Other)
  Sender: FDA-Public Use
  Company Number: PHHY2010JP18525

PATIENT

DRUGS (1)
  1. FEMARA [Suspect]
     Indication: BREAST CANCER
     Route: 048

REACTIONS (1)
  - PULMONARY MYCOSIS [None]
